FAERS Safety Report 24889275 (Version 1)
Quarter: 2025Q1

REPORT INFORMATION
  Report Type: Spontaneous
  Country: US (occurrence: None)
  Receive Date: 20250125
  Receipt Date: 20250125
  Transmission Date: 20250408
  Serious: Yes (Hospitalization)
  Sender: FDA-CTU
  Company Number: None

PATIENT
  Sex: Female

DRUGS (1)
  1. PIQRAY [Suspect]
     Active Substance: ALPELISIB
     Dosage: OTHER STRENGTH : 2X 150 MG ;?FREQUENCY : DAILY;?
     Dates: start: 20250125

REACTIONS (2)
  - Hospitalisation [None]
  - Intentional dose omission [None]
